FAERS Safety Report 15021880 (Version 1)
Quarter: 2018Q2

REPORT INFORMATION
  Report Type: Spontaneous
  Country: US (occurrence: US)
  Receive Date: 20180618
  Receipt Date: 20180618
  Transmission Date: 20180711
  Serious: No
  Sender: FDA-Public Use
  Company Number: US-SA-2018SA113808

PATIENT
  Age: 23 Year
  Sex: Male
  Weight: 113 kg

DRUGS (6)
  1. AZELASTINE. [Concomitant]
     Active Substance: AZELASTINE HYDROCHLORIDE
     Indication: CONJUNCTIVITIS ALLERGIC
     Dosage: 4 DF, BID
     Route: 045
     Dates: start: 20170824
  2. DUPIXENT [Suspect]
     Active Substance: DUPILUMAB
     Indication: DERMATITIS ATOPIC
     Dosage: 300 MG, QOW
     Route: 065
     Dates: start: 201708
  3. MONTELUKAST [Concomitant]
     Active Substance: MONTELUKAST SODIUM
     Indication: CONJUNCTIVITIS ALLERGIC
  4. OLOPATADINE. [Concomitant]
     Active Substance: OLOPATADINE
     Indication: CONJUNCTIVITIS ALLERGIC
     Dosage: 2 GTT DROPS, QD
     Route: 031
     Dates: start: 20180416
  5. FLUTICASONE. [Concomitant]
     Active Substance: FLUTICASONE
     Indication: CONJUNCTIVITIS ALLERGIC
     Dosage: 4 DF, QD
     Route: 045
     Dates: start: 20170822
  6. MONTELUKAST [Concomitant]
     Active Substance: MONTELUKAST SODIUM
     Indication: ASTHMA
     Dosage: 10 MG, QD
     Dates: start: 20170824

REACTIONS (1)
  - Conjunctivitis [Not Recovered/Not Resolved]
